FAERS Safety Report 9677995 (Version 2)
Quarter: 2013Q4

REPORT INFORMATION
  Report Type: Spontaneous
  Country: ES (occurrence: None)
  Receive Date: 20131106
  Receipt Date: 20131115
  Transmission Date: 20140711
  Serious: Yes (Other)
  Sender: FDA-Public Use
  Company Number: AUR-APL-2013-09106

PATIENT
  Age: 45 Year
  Sex: Female

DRUGS (1)
  1. AMOXICILLIN+CLAVULANIC ACID [Suspect]
     Indication: PERIODONTITIS

REACTIONS (5)
  - Pruritus generalised [None]
  - Conjunctival hyperaemia [None]
  - Generalised erythema [None]
  - Angioedema [None]
  - Lymphocyte transformation test positive [None]
